FAERS Safety Report 7528693-0 (Version None)
Quarter: 2011Q2

REPORT INFORMATION
  Report Type: 
  Country: None (occurrence: None)
  Receive Date: 20110607
  Receipt Date: 20041027
  Transmission Date: 20111010
  Serious: Yes (Other)
  Sender: FDA-Public Use
  Company Number: PHHO2004CA15074

PATIENT
  Sex: Male

DRUGS (2)
  1. VALPROATE SODIUM [Concomitant]
  2. CLOZARIL [Suspect]
     Indication: PSYCHOTIC DISORDER
     Dates: start: 20040801, end: 20041027

REACTIONS (6)
  - DIARRHOEA [None]
  - CROHN'S DISEASE [None]
  - VOMITING [None]
  - WEIGHT DECREASED [None]
  - NEUTROPHIL COUNT INCREASED [None]
  - WHITE BLOOD CELL COUNT INCREASED [None]
